FAERS Safety Report 8220238-5 (Version None)
Quarter: 2012Q1

REPORT INFORMATION
  Report Type: 
  Country: None (occurrence: None)
  Receive Date: 20120320
  Receipt Date: 20120309
  Transmission Date: 20120608
  Serious: Yes (Other)
  Sender: FDA-Public Use
  Company Number: US-BAYER-2011-110316

PATIENT
  Age: 28 Year
  Sex: Female
  Weight: 42 kg

DRUGS (6)
  1. YASMIN [Suspect]
  2. SEASONALE [Concomitant]
     Indication: ORAL CONTRACEPTION
  3. YAZ [Suspect]
  4. YASMIN [Suspect]
     Indication: PREMENSTRUAL SYNDROME
     Dosage: UNK
     Dates: start: 20081001, end: 20100201
  5. LOESTRIN FE 1/20 [Concomitant]
     Indication: CONTRACEPTION
  6. YAZ [Suspect]
     Indication: PREMENSTRUAL SYNDROME
     Dosage: UNK
     Dates: start: 20081001, end: 20100201

REACTIONS (5)
  - INJURY [None]
  - PAIN [None]
  - CHOLECYSTITIS CHRONIC [None]
  - CHOLELITHIASIS [None]
  - MENTAL DISORDER [None]
